FAERS Safety Report 5427353-X (Version None)
Quarter: 2007Q3

REPORT INFORMATION
  Report Type: 
  Country: None (occurrence: None)
  Receive Date: 20070828
  Receipt Date: 20070827
  Transmission Date: 20080115
  Serious: Yes (Hospitalization)
  Sender: FDA-Public Use
  Company Number: AT-BRISTOL-MYERS SQUIBB COMPANY-13451398

PATIENT
  Age: 76 Year
  Sex: Female

DRUGS (2)
  1. METHOTREXATE [Suspect]
     Indication: RHEUMATOID ARTHRITIS
     Dosage: PATIENT RECEIVED INITIALLY ORAL METHOTREXATE 7.5 MG WEEKLY.
     Route: 058
  2. DIPYRONE [Suspect]
     Indication: PAIN MANAGEMENT

REACTIONS (4)
  - CANDIDIASIS [None]
  - LOBAR PNEUMONIA [None]
  - MYELODYSPLASTIC SYNDROME [None]
  - SEPSIS [None]
